FAERS Safety Report 24690816 (Version 1)
Quarter: 2024Q4

REPORT INFORMATION
  Report Type: Report from Study
  Country: US (occurrence: US)
  Receive Date: 20241203
  Receipt Date: 20241203
  Transmission Date: 20250115
  Serious: Yes (Other)
  Sender: ABBVIE
  Company Number: US-ABBVIE-6025158

PATIENT
  Age: 81 Year
  Sex: Male

DRUGS (1)
  1. VENCLEXTA [Suspect]
     Active Substance: VENETOCLAX
     Indication: Product used for unknown indication
     Dosage: TAKE 2 TABLET(S) BY MOUTH DAILY WITH DINNER
     Route: 048

REACTIONS (3)
  - Mantle cell lymphoma [Unknown]
  - Lymphoedema [Unknown]
  - Off label use [Unknown]
